FAERS Safety Report 8734379 (Version 2)
Quarter: 2015Q3

REPORT INFORMATION
  Report Type: Report from Study
  Country: US (occurrence: US)
  Receive Date: 20120821
  Receipt Date: 20150709
  Transmission Date: 20151125
  Serious: Yes (Other)
  Sender: FDA-Public Use
  Company Number: US-ROCHE-1100713

PATIENT
  Sex: Female

DRUGS (19)
  1. STREPTOKINASE [Concomitant]
     Active Substance: STREPTOKINASE
     Dosage: 1.5MILLION UNITS OVER 60 MIN
     Route: 065
  2. ZANTAC [Concomitant]
     Active Substance: RANITIDINE HYDROCHLORIDE
     Route: 042
  3. IMDUR [Concomitant]
     Active Substance: ISOSORBIDE MONONITRATE
     Route: 048
  4. COUMADIN [Concomitant]
     Active Substance: WARFARIN SODIUM
     Dosage: UNTILL 06/FEB/1996 AFTER THAT DOSE SHOULD BE ADJUSTED ACCORDING TO INR.
     Route: 048
  5. GLYBURIDE. [Concomitant]
     Active Substance: GLYBURIDE
     Route: 065
  6. HEPARIN [Concomitant]
     Active Substance: HEPARIN SODIUM
     Route: 040
  7. ACTIVASE [Suspect]
     Active Substance: ALTEPLASE
     Indication: MYOCARDIAL INFARCTION
     Route: 065
  8. LIDOCAINE. [Concomitant]
     Active Substance: LIDOCAINE
     Route: 040
  9. LOVASTATIN. [Concomitant]
     Active Substance: LOVASTATIN
     Route: 065
  10. PEPCID [Concomitant]
     Active Substance: FAMOTIDINE
     Route: 065
  11. BABY ASPIRIN [Concomitant]
     Active Substance: ASPIRIN
     Route: 065
  12. EMINASE [Concomitant]
     Active Substance: ANISTREPLASE
     Route: 042
  13. NITROGLYCERIN. [Concomitant]
     Active Substance: NITROGLYCERIN
     Dosage: PRN TIME 3 EVERY 5 MINUTE
     Route: 060
  14. METHYLPREDNISOLONE. [Concomitant]
     Active Substance: METHYLPREDNISOLONE
     Route: 042
  15. LOPRESSOR [Concomitant]
     Active Substance: METOPROLOL TARTRATE
     Route: 042
  16. ASPIRIN. [Concomitant]
     Active Substance: ASPIRIN
     Route: 048
  17. ATENOLOL. [Concomitant]
     Active Substance: ATENOLOL
     Route: 065
  18. ACTIVASE [Suspect]
     Active Substance: ALTEPLASE
     Route: 065
  19. LIDOCAINE. [Concomitant]
     Active Substance: LIDOCAINE
     Route: 040

REACTIONS (1)
  - Escherichia urinary tract infection [Unknown]
